FAERS Safety Report 20690456 (Version 2)
Quarter: 2022Q2

REPORT INFORMATION
  Report Type: Spontaneous
  Country: US (occurrence: US)
  Receive Date: 20220408
  Receipt Date: 20220414
  Transmission Date: 20220721
  Serious: No
  Sender: FDA-Public Use
  Company Number: US-NOVARTISTESTPH-NVSC2022US080388

PATIENT
  Sex: Female

DRUGS (1)
  1. ENTRESTO [Suspect]
     Active Substance: SACUBITRIL\VALSARTAN
     Indication: Cardiac failure
     Dosage: 1.25 DOSAGE FORM, BID (49-51MG 1 QAM AND 1.5 TABS QPM)
     Route: 048
     Dates: start: 20180721

REACTIONS (1)
  - Wrong technique in product usage process [Unknown]
